FAERS Safety Report 7019862-7 (Version None)
Quarter: 2010Q3

REPORT INFORMATION
  Report Type: 
  Country: None (occurrence: None)
  Receive Date: 20100923
  Receipt Date: 20100908
  Transmission Date: 20110219
  Serious: Yes (Hospitalization, Other)
  Sender: FDA-Public Use
  Company Number: JPI-P-011845

PATIENT
  Age: 40 Year
  Sex: Female
  Weight: 83.4619 kg

DRUGS (6)
  1. XYREM [Suspect]
     Indication: CATAPLEXY
     Dosage: 2 GM (1 GM, 2 IN 1 D), ORAL; 6 GM (3 GM, 2 IN 1 D), ORAL; 4.5 GM (2.25 GM, 2 IN 1 D), ORAL
     Route: 048
     Dates: start: 20100805, end: 20100812
  2. XYREM [Suspect]
     Indication: CATAPLEXY
     Dosage: 2 GM (1 GM, 2 IN 1 D), ORAL; 6 GM (3 GM, 2 IN 1 D), ORAL; 4.5 GM (2.25 GM, 2 IN 1 D), ORAL
     Route: 048
     Dates: start: 20100813, end: 20100818
  3. XYREM [Suspect]
     Indication: CATAPLEXY
     Dosage: 2 GM (1 GM, 2 IN 1 D), ORAL; 6 GM (3 GM, 2 IN 1 D), ORAL; 4.5 GM (2.25 GM, 2 IN 1 D), ORAL
     Route: 048
     Dates: start: 20100819, end: 20100830
  4. ARMODAFINIL [Concomitant]
  5. HYDROCHLOROTHIAZIDE [Concomitant]
  6. FUROSEMIDE [Concomitant]

REACTIONS (8)
  - DECREASED APPETITE [None]
  - NAUSEA [None]
  - OEDEMA PERIPHERAL [None]
  - PROCEDURAL PAIN [None]
  - SOMNAMBULISM [None]
  - THORACIC OUTLET SYNDROME [None]
  - VOMITING [None]
  - WEIGHT DECREASED [None]
